FAERS Safety Report 10039100 (Version 1)
Quarter: 2014Q1

REPORT INFORMATION
  Report Type: Spontaneous
  Country: CH (occurrence: CH)
  Receive Date: 20140326
  Receipt Date: 20140326
  Transmission Date: 20141002
  Serious: Yes (Hospitalization, Other)
  Sender: FDA-Public Use
  Company Number: CH-JNJFOC-20140307393

PATIENT
  Age: 45 Year
  Sex: Female

DRUGS (5)
  1. SIMPONI [Suspect]
     Indication: PSORIATIC ARTHROPATHY
     Route: 058
  2. SIMPONI [Suspect]
     Indication: SAPHO SYNDROME
     Route: 058
  3. MTX [Concomitant]
     Indication: PSORIATIC ARTHROPATHY
     Route: 058
  4. MTX [Concomitant]
     Indication: SAPHO SYNDROME
     Route: 058
  5. FLAGYL [Concomitant]
     Indication: VULVOVAGINAL MYCOTIC INFECTION
     Route: 048
     Dates: start: 20140201, end: 20140208

REACTIONS (4)
  - Chest pain [Recovered/Resolved]
  - Myalgia [Recovered/Resolved]
  - Blood creatine phosphokinase increased [Recovered/Resolved]
  - Off label use [Unknown]
